FAERS Safety Report 25204700 (Version 1)
Quarter: 2025Q2

REPORT INFORMATION
  Report Type: Spontaneous
  Country: CA (occurrence: CA)
  Receive Date: 20250416
  Receipt Date: 20250416
  Transmission Date: 20250717
  Serious: Yes (Hospitalization)
  Sender: ROCHE
  Company Number: CA-ROCHE-10000251803

PATIENT
  Age: 13 Year
  Sex: Male
  Weight: 69 kg

DRUGS (4)
  1. ACTEMRA [Suspect]
     Active Substance: TOCILIZUMAB
     Indication: Juvenile idiopathic arthritis
     Route: 058
  2. ASCORBIC ACID [Concomitant]
     Active Substance: ASCORBIC ACID
     Route: 065
  3. FUROSEMIDE [Concomitant]
     Active Substance: FUROSEMIDE
  4. ONDANSETRON [Concomitant]
     Active Substance: ONDANSETRON

REACTIONS (8)
  - Altered state of consciousness [Recovered/Resolved]
  - Appendicectomy [Recovered/Resolved]
  - Appendicitis perforated [Recovered/Resolved]
  - Headache [Recovered/Resolved]
  - Hypotension [Recovered/Resolved]
  - Meningitis aseptic [Recovered/Resolved]
  - Musculoskeletal stiffness [Recovered/Resolved]
  - Shock [Recovered/Resolved]
